FAERS Safety Report 25760432 (Version 1)
Quarter: 2025Q3

REPORT INFORMATION
  Report Type: Report from Study
  Country: US (occurrence: US)
  Receive Date: 20250904
  Receipt Date: 20250904
  Transmission Date: 20251021
  Serious: Yes (Other)
  Sender: ALEXION PHARMACEUTICALS
  Company Number: US-ASTRAZENECA-202508USA025485US

PATIENT
  Sex: Female

DRUGS (2)
  1. OSIMERTINIB [Suspect]
     Active Substance: OSIMERTINIB
     Indication: Lung carcinoma cell type unspecified stage 0
     Dosage: 40 MILLIGRAM, QD
     Dates: start: 202508
  2. ELIQUIS [Concomitant]
     Active Substance: APIXABAN
     Route: 065

REACTIONS (5)
  - Fall [Unknown]
  - Balance disorder [Unknown]
  - Bone contusion [Unknown]
  - Atrial fibrillation [Unknown]
  - Arthralgia [Unknown]
